FAERS Safety Report 7247950-9 (Version None)
Quarter: 2011Q1

REPORT INFORMATION
  Report Type: 
  Country: None (occurrence: None)
  Receive Date: 20110127
  Receipt Date: 20101202
  Transmission Date: 20110831
  Serious: Yes (Other)
  Sender: FDA-Public Use
  Company Number: US-MYLANLABS-2010S1022235

PATIENT
  Age: 62 Year
  Sex: Female

DRUGS (2)
  1. EMSAM [Suspect]
     Route: 062
  2. LAMOTRIGINE [Suspect]

REACTIONS (1)
  - ANAEMIA [None]
